FAERS Safety Report 13414832 (Version 3)
Quarter: 2023Q2

REPORT INFORMATION
  Report Type: Spontaneous
  Country: US (occurrence: US)
  Receive Date: 20170406
  Receipt Date: 20230507
  Transmission Date: 20230721
  Serious: Yes (Other)
  Sender: FDA-Public Use
  Company Number: US-JNJFOC-20170319778

PATIENT
  Sex: Male

DRUGS (10)
  1. RISPERDAL [Suspect]
     Active Substance: RISPERIDONE
     Indication: Schizophrenia
     Route: 048
     Dates: start: 20100502
  2. RISPERDAL [Suspect]
     Active Substance: RISPERIDONE
     Route: 048
     Dates: start: 20100519, end: 20100813
  3. RISPERDAL [Suspect]
     Active Substance: RISPERIDONE
     Route: 048
     Dates: start: 20100823
  4. RISPERDAL [Suspect]
     Active Substance: RISPERIDONE
     Route: 048
     Dates: start: 20100907, end: 20100927
  5. RISPERDAL [Suspect]
     Active Substance: RISPERIDONE
     Dosage: 1.5 MG IN MORNING AND 3 MG AT BEDTIME
     Route: 048
     Dates: end: 2013
  6. RISPERDAL [Suspect]
     Active Substance: RISPERIDONE
     Route: 048
     Dates: start: 20130314
  7. RISPERDAL [Suspect]
     Active Substance: RISPERIDONE
     Route: 048
     Dates: start: 20140616
  8. RISPERIDONE [Suspect]
     Active Substance: RISPERIDONE
     Indication: Schizophrenia
     Route: 048
     Dates: start: 20100512
  9. RISPERIDONE [Suspect]
     Active Substance: RISPERIDONE
     Dosage: AT VARYING DOSES OF 1 MG TO 3 MG
     Route: 048
     Dates: start: 20130128, end: 20130302
  10. HALOPERIDOL [Suspect]
     Active Substance: HALOPERIDOL
     Indication: Product used for unknown indication
     Route: 065

REACTIONS (3)
  - Weight increased [Not Recovered/Not Resolved]
  - Emotional disorder [Unknown]
  - Gynaecomastia [Unknown]
